FAERS Safety Report 8567579-X (Version None)
Quarter: 2012Q3

REPORT INFORMATION
  Report Type: 
  Country: None (occurrence: None)
  Receive Date: 20120803
  Receipt Date: 20120725
  Transmission Date: 20120928
  Serious: Yes (Hospitalization)
  Sender: FDA-Public Use
  Company Number: US-ACTELION-A-NJ2012-69374

PATIENT
  Age: 62 Year
  Sex: Male

DRUGS (3)
  1. EPOPROSTENOL SODIUM [Suspect]
     Indication: PULMONARY ARTERIAL HYPERTENSION
     Dosage: 22 NG/KG, PER MIN
     Route: 041
     Dates: start: 20120522
  2. ASPIRIN [Concomitant]
  3. COUMADIN [Concomitant]

REACTIONS (1)
  - GALLBLADDER DISORDER [None]
